FAERS Safety Report 8467391-6 (Version None)
Quarter: 2012Q2

REPORT INFORMATION
  Report Type: 
  Country: None (occurrence: None)
  Receive Date: 20120626
  Receipt Date: 20120620
  Transmission Date: 20120825
  Serious: Yes (Other)
  Sender: FDA-Public Use
  Company Number: PHHY2012BR054412

PATIENT
  Sex: Female
  Weight: 50 kg

DRUGS (1)
  1. DIOVAN [Suspect]
     Indication: HYPERTENSION
     Dosage: 80 MG, ONE TABLET DAILY
     Route: 048

REACTIONS (5)
  - BURNING SENSATION [None]
  - INTERVERTEBRAL DISC PROTRUSION [None]
  - TENDONITIS [None]
  - LIMB DISCOMFORT [None]
  - ARTHROPATHY [None]
